FAERS Safety Report 12851725 (Version 1)
Quarter: 2016Q4

REPORT INFORMATION
  Report Type: Spontaneous
  Country: US (occurrence: US)
  Receive Date: 20161016
  Receipt Date: 20161016
  Transmission Date: 20170207
  Serious: Yes (Other)
  Sender: FDA-Public Use
  Company Number: US-AMGEN-USASP2016140742

PATIENT
  Sex: Female

DRUGS (7)
  1. XGEVA [Suspect]
     Active Substance: DENOSUMAB
     Indication: METASTASES TO BONE
     Dosage: UNK UNK, Q4WK
     Route: 065
  2. HERCEPTIN [Concomitant]
     Active Substance: TRASTUZUMAB
     Indication: METASTASES TO LIVER
  3. NAVELBINE [Concomitant]
     Active Substance: VINORELBINE TARTRATE
     Indication: METASTASES TO BONE
     Dosage: UNK
  4. IXEMPRA [Concomitant]
     Active Substance: IXABEPILONE
     Indication: METASTASES TO LIVER
  5. HERCEPTIN [Concomitant]
     Active Substance: TRASTUZUMAB
     Indication: METASTASES TO BONE
     Dosage: UNK UNK, Q3WK
  6. IXEMPRA [Concomitant]
     Active Substance: IXABEPILONE
     Indication: METASTASES TO BONE
     Dosage: UNK UNK, QWK
     Dates: start: 201609
  7. NAVELBINE [Concomitant]
     Active Substance: VINORELBINE TARTRATE
     Indication: METASTASES TO LIVER

REACTIONS (9)
  - Metastases to central nervous system [Unknown]
  - Metastases to liver [Unknown]
  - Flatulence [Unknown]
  - Metastases to bone [Unknown]
  - Asthenia [Unknown]
  - Abdominal pain [Unknown]
  - Hypophagia [Unknown]
  - Vomiting [Unknown]
  - Weight decreased [Unknown]
